FAERS Safety Report 20152561 (Version 1)
Quarter: 2021Q4

REPORT INFORMATION
  Report Type: Spontaneous
  Country: US (occurrence: US)
  Receive Date: 20211206
  Receipt Date: 20211206
  Transmission Date: 20220303
  Serious: No
  Sender: FDA-Public Use
  Company Number: US-JNJFOC-20211142133

PATIENT
  Age: 55 Year
  Sex: Male

DRUGS (1)
  1. MENS ROGAINE EXTRA STRENGTH [Suspect]
     Active Substance: MINOXIDIL
     Indication: Product used for unknown indication
     Dosage: DOSE: 3 TIMES MORE THAN AS DIRECTED, USUALLY DOUBLE THE DROPPER
     Route: 065
     Dates: start: 202107

REACTIONS (6)
  - Application site pruritus [Not Recovered/Not Resolved]
  - Application site pain [Recovered/Resolved]
  - Product use in unapproved indication [Unknown]
  - Off label use [Unknown]
  - Contraindicated product administered [Unknown]
  - Overdose [Unknown]

NARRATIVE: CASE EVENT DATE: 20210101
